FAERS Safety Report 11111790 (Version 1)
Quarter: 2015Q2

REPORT INFORMATION
  Report Type: Spontaneous
  Country: FR (occurrence: FR)
  Receive Date: 20150514
  Receipt Date: 20150514
  Transmission Date: 20150821
  Serious: Yes (Hospitalization)
  Sender: FDA-Public Use
  Company Number: FR-ROCHE-1577586

PATIENT
  Age: 80 Year
  Sex: Female

DRUGS (4)
  1. PACLITAXEL. [Concomitant]
     Active Substance: PACLITAXEL
     Dosage: ON D1 D8 AND D15
     Route: 042
  2. AVASTIN [Suspect]
     Active Substance: BEVACIZUMAB
     Indication: PRODUCT USED FOR UNKNOWN INDICATION
     Dosage: AS D1 ON D15
     Route: 042
     Dates: start: 20150311
  3. PACLITAXEL. [Concomitant]
     Active Substance: PACLITAXEL
     Dosage: SECOMD CYCLE FROM 15/APR/2015; C2 D8 ON 22/APR/2015.
     Route: 042
     Dates: start: 20150415
  4. AVASTIN [Suspect]
     Active Substance: BEVACIZUMAB
     Dosage: SECOMD CYCLE FROM 15/APR/2015; C2 D8 ON 22/APR/2015.
     Route: 042
     Dates: start: 20150415

REACTIONS (2)
  - Pulmonary embolism [Recovering/Resolving]
  - Pneumothorax [Recovering/Resolving]

NARRATIVE: CASE EVENT DATE: 20150424
